FAERS Safety Report 25149409 (Version 1)
Quarter: 2025Q2

REPORT INFORMATION
  Report Type: Spontaneous
  Country: GB (occurrence: GB)
  Receive Date: 20250402
  Receipt Date: 20250402
  Transmission Date: 20250716
  Serious: Yes (Other)
  Sender: MYLAN
  Company Number: None

PATIENT
  Age: 91 Year
  Sex: Female

DRUGS (28)
  1. ATORVASTATIN [Suspect]
     Active Substance: ATORVASTATIN
     Indication: Cerebrovascular accident
     Dosage: 80 MILLIGRAM, PM (80MG NOCTE)
     Dates: start: 20250312, end: 20250320
  2. ATORVASTATIN [Suspect]
     Active Substance: ATORVASTATIN
     Dosage: 80 MILLIGRAM, PM (80MG NOCTE)
     Route: 065
     Dates: start: 20250312, end: 20250320
  3. ATORVASTATIN [Suspect]
     Active Substance: ATORVASTATIN
     Dosage: 80 MILLIGRAM, PM (80MG NOCTE)
     Route: 065
     Dates: start: 20250312, end: 20250320
  4. ATORVASTATIN [Suspect]
     Active Substance: ATORVASTATIN
     Dosage: 80 MILLIGRAM, PM (80MG NOCTE)
     Dates: start: 20250312, end: 20250320
  5. CLOPIDOGREL [Concomitant]
     Active Substance: CLOPIDOGREL BISULFATE
     Indication: Cerebrovascular accident
  6. CLOPIDOGREL [Concomitant]
     Active Substance: CLOPIDOGREL BISULFATE
     Route: 065
  7. CLOPIDOGREL [Concomitant]
     Active Substance: CLOPIDOGREL BISULFATE
     Route: 065
  8. CLOPIDOGREL [Concomitant]
     Active Substance: CLOPIDOGREL BISULFATE
  9. METFORMIN [Concomitant]
     Active Substance: METFORMIN HYDROCHLORIDE
     Indication: Type 2 diabetes mellitus
  10. METFORMIN [Concomitant]
     Active Substance: METFORMIN HYDROCHLORIDE
     Route: 065
  11. METFORMIN [Concomitant]
     Active Substance: METFORMIN HYDROCHLORIDE
     Route: 065
  12. METFORMIN [Concomitant]
     Active Substance: METFORMIN HYDROCHLORIDE
  13. LOSARTAN [Concomitant]
     Active Substance: LOSARTAN
     Indication: Hypertension
  14. LOSARTAN [Concomitant]
     Active Substance: LOSARTAN
     Route: 065
  15. LOSARTAN [Concomitant]
     Active Substance: LOSARTAN
     Route: 065
  16. LOSARTAN [Concomitant]
     Active Substance: LOSARTAN
  17. INDAPAMIDE [Concomitant]
     Active Substance: INDAPAMIDE
  18. INDAPAMIDE [Concomitant]
     Active Substance: INDAPAMIDE
     Route: 065
  19. INDAPAMIDE [Concomitant]
     Active Substance: INDAPAMIDE
     Route: 065
  20. INDAPAMIDE [Concomitant]
     Active Substance: INDAPAMIDE
  21. AMLODIPINE [Concomitant]
     Active Substance: AMLODIPINE BESYLATE
  22. AMLODIPINE [Concomitant]
     Active Substance: AMLODIPINE BESYLATE
     Route: 065
  23. AMLODIPINE [Concomitant]
     Active Substance: AMLODIPINE BESYLATE
     Route: 065
  24. AMLODIPINE [Concomitant]
     Active Substance: AMLODIPINE BESYLATE
  25. LANSOPRAZOLE [Concomitant]
     Active Substance: LANSOPRAZOLE
  26. LANSOPRAZOLE [Concomitant]
     Active Substance: LANSOPRAZOLE
     Route: 065
  27. LANSOPRAZOLE [Concomitant]
     Active Substance: LANSOPRAZOLE
     Route: 065
  28. LANSOPRAZOLE [Concomitant]
     Active Substance: LANSOPRAZOLE

REACTIONS (2)
  - Muscle spasms [Recovering/Resolving]
  - Medication error [Unknown]
